FAERS Safety Report 5845342-8 (Version None)
Quarter: 2008Q3

REPORT INFORMATION
  Report Type: 
  Country: None (occurrence: None)
  Receive Date: 20080731
  Receipt Date: 20080427
  Transmission Date: 20090109
  Serious: No
  Sender: FDA-Public Use
  Company Number: US200805000631

PATIENT
  Age: 55 Year
  Sex: Female
  Weight: 93 kg

DRUGS (13)
  1. BYETTA [Suspect]
     Indication: TYPE 2 DIABETES MELLITUS
     Dosage: 5 UG, 2/D, SUBCUTANEOUS ; 10 UG, 2/D, SUBCUTANEOUS
     Route: 058
     Dates: start: 20060101, end: 20060101
  2. BYETTA [Suspect]
     Indication: TYPE 2 DIABETES MELLITUS
     Dosage: 5 UG, 2/D, SUBCUTANEOUS ; 10 UG, 2/D, SUBCUTANEOUS
     Route: 058
     Dates: start: 20060101, end: 20080413
  3. METFORMIN HCL [Concomitant]
  4. ATENOLOL [Concomitant]
  5. ISOSORBIDE MONONITRATE [Concomitant]
  6. ZOCOR [Concomitant]
  7. NORVASC /00972401/ (AMLODIPINE) [Concomitant]
  8. ASPIRIN [Concomitant]
  9. RESTORIL [Concomitant]
  10. GLYBURIDE [Concomitant]
  11. PROZAC [Concomitant]
  12. PROTONIX /01263201/ (PANTOPRAZOLE) [Concomitant]
  13. EXENATIDE [Concomitant]

REACTIONS (6)
  - ARTHRALGIA [None]
  - DEPRESSION [None]
  - GASTROOESOPHAGEAL REFLUX DISEASE [None]
  - MALAISE [None]
  - PARAESTHESIA [None]
  - TENDERNESS [None]
